FAERS Safety Report 19109268 (Version 2)
Quarter: 2021Q2

REPORT INFORMATION
  Report Type: Spontaneous
  Country: MA (occurrence: US)
  Receive Date: 20210408
  Receipt Date: 20210525
  Transmission Date: 20210717
  Serious: Yes (Other)
  Sender: FDA-Public Use
  Company Number: US-GLAXOSMITHKLINE-US2021AMR075587

PATIENT
  Age: 73 Year
  Sex: Female

DRUGS (2)
  1. LAMOTRIGINE. [Suspect]
     Active Substance: LAMOTRIGINE
     Indication: SEIZURE
  2. LAMOTRIGINE. [Suspect]
     Active Substance: LAMOTRIGINE
     Indication: EPILEPSY
     Dosage: 25 MG, QD

REACTIONS (4)
  - Hallucination, visual [Recovered/Resolved]
  - Anxiety [Recovered/Resolved]
  - Hallucination, tactile [Recovered/Resolved]
  - Obsessive-compulsive disorder [Recovered/Resolved]
